FAERS Safety Report 9173897 (Version 1)
Quarter: 2013Q1

REPORT INFORMATION
  Report Type: Spontaneous
  Country: FR (occurrence: None)
  Receive Date: 20130315
  Receipt Date: 20130315
  Transmission Date: 20140127
  Serious: Yes (Hospitalization)
  Sender: FDA-Public Use
  Company Number: 2013-03775

PATIENT
  Age: 54 Year
  Sex: Female
  Weight: 84 kg

DRUGS (7)
  1. CITRATE DE BETAINE [Suspect]
     Indication: PRODUCT USED FOR UNKNOWN INDICATION
     Route: 048
  2. IBUPROFEN (UNKNOWN) (IBUPROFEN) UNK, UNKUNK [Suspect]
     Indication: BACK PAIN
     Route: 048
     Dates: end: 20120908
  3. LIDENE [Suspect]
     Indication: SLEEP DISORDER
     Route: 048
     Dates: start: 201207, end: 20120908
  4. OMEGA-3-ACID ETHYL ESTERS [Suspect]
     Indication: PRODUCT USED FOR UNKNOWN INDICATION
     Route: 048
  5. TENORETIC (ATENOLOL, CHLORTALIDONE) [Concomitant]
  6. DOLIPRANE (PARACETAMOL) [Concomitant]
  7. DAFALGAN CODEINE (CODEINE PHOSPHATE, PARACETAMOL) [Concomitant]

REACTIONS (2)
  - Coombs positive haemolytic anaemia [None]
  - Self-medication [None]
